FAERS Safety Report 11121497 (Version 1)
Quarter: 2015Q2

REPORT INFORMATION
  Report Type: Spontaneous
  Country: GB (occurrence: None)
  Receive Date: 20150515
  Receipt Date: 20150515
  Transmission Date: 20150821
  Serious: Yes (Hospitalization, Other)
  Sender: FDA-Public Use
  Company Number: FK201502240

PATIENT
  Age: 28 Year
  Sex: Male
  Weight: 108 kg

DRUGS (11)
  1. DALTEPARIN SODIUM [Concomitant]
     Active Substance: DALTEPARIN SODIUM
  2. PREDNISOLONE. [Concomitant]
     Active Substance: PREDNISOLONE
  3. BISOPROLOL [Concomitant]
     Active Substance: BISOPROLOL
  4. CIPROFLOXACIN. [Concomitant]
     Active Substance: CIPROFLOXACIN
  5. CO-AMOXICLAV (SPEKTRAMOX) [Concomitant]
  6. ORAMORPH (MORPHINE SULFATE PENTAHYDRATE) [Concomitant]
  7. DOXORUBIN (DOXORUBICIN HYDROCHLORIDE) [Concomitant]
  8. IFOSFAMIDE. [Concomitant]
     Active Substance: IFOSFAMIDE
  9. ONDANSETRON. [Suspect]
     Active Substance: ONDANSETRON
     Indication: NAUSEA
     Dosage: INTRAVENOUS (NOT OTHERWISE SPECIFIED)
     Route: 042
  10. PARACETAMOL [Concomitant]
     Active Substance: ACETAMINOPHEN
  11. SENNA [Concomitant]
     Active Substance: SENNA LEAF\SENNOSIDES\SENNOSIDES A AND B

REACTIONS (5)
  - Oculogyric crisis [None]
  - Trismus [None]
  - Extrapyramidal disorder [None]
  - IIIrd nerve disorder [None]
  - Somnolence [None]
